FAERS Safety Report 11162149 (Version 1)
Quarter: 2015Q2

REPORT INFORMATION
  Report Type: Spontaneous
  Country: US (occurrence: US)
  Receive Date: 20150604
  Receipt Date: 20150604
  Transmission Date: 20150821
  Serious: No
  Sender: FDA-Public Use
  Company Number: US-SA-2014SA124874

PATIENT

DRUGS (1)
  1. LANTUS [Suspect]
     Active Substance: INSULIN GLARGINE
     Route: 065

REACTIONS (5)
  - Asthenia [Unknown]
  - Nausea [Unknown]
  - Muscle spasms [Unknown]
  - Blood glucose increased [Unknown]
  - Drug dose omission [Unknown]
